FAERS Safety Report 15676718 (Version 2)
Quarter: 2018Q4

REPORT INFORMATION
  Report Type: Spontaneous
  Country: FR (occurrence: FR)
  Receive Date: 20181130
  Receipt Date: 20181204
  Transmission Date: 20190205
  Serious: Yes (Death, Hospitalization, Other)
  Sender: FDA-Public Use
  Company Number: FR-SA-2018SA310896

PATIENT
  Age: 68 Year
  Sex: Female
  Weight: 68 kg

DRUGS (7)
  1. LEVETIRACETAM. [Suspect]
     Active Substance: LEVETIRACETAM
     Indication: EPILEPSY
     Dosage: UNK
     Route: 048
     Dates: start: 20180905, end: 20180916
  2. URBANYL [Concomitant]
     Active Substance: CLOBAZAM
     Indication: EPILEPSY
     Dosage: UNK
     Route: 048
     Dates: start: 20180908
  3. KETAMINE HYDROCHLORIDE. [Concomitant]
     Active Substance: KETAMINE HYDROCHLORIDE
     Indication: EPILEPSY
     Dosage: UNK
     Route: 040
     Dates: start: 20180905, end: 20180925
  4. CEFOTAXIME SODIUM [Suspect]
     Active Substance: CEFOTAXIME SODIUM
     Indication: PRODUCT USED FOR UNKNOWN INDICATION
     Dosage: UNK
     Route: 040
     Dates: start: 20180908, end: 20180912
  5. METRONIDAZOLE. [Suspect]
     Active Substance: METRONIDAZOLE
     Indication: PRODUCT USED FOR UNKNOWN INDICATION
     Dosage: UNK
     Route: 048
     Dates: start: 20180908, end: 20180912
  6. THIOPENTAL SODIQUE [Concomitant]
     Active Substance: THIOPENTAL SODIUM
     Indication: EPILEPSY
     Dosage: UNK
     Route: 040
     Dates: start: 20180905, end: 20180912
  7. DIPRIVAN [Concomitant]
     Active Substance: PROPOFOL
     Indication: EPILEPSY
     Dosage: UNK
     Route: 040
     Dates: start: 20180905, end: 20180925

REACTIONS (2)
  - Cholestasis [Recovering/Resolving]
  - Death [Fatal]

NARRATIVE: CASE EVENT DATE: 20180910
